FAERS Safety Report 19268611 (Version 1)
Quarter: 2021Q2

REPORT INFORMATION
  Report Type: Spontaneous
  Country: US (occurrence: US)
  Receive Date: 20210518
  Receipt Date: 20210518
  Transmission Date: 20210717
  Serious: No
  Sender: FDA-Public Use
  Company Number: US-TEVA-2021-US-1911403

PATIENT
  Sex: Female

DRUGS (1)
  1. DILTIAZEM HYDROCHLORIDE TEVA [Suspect]
     Active Substance: DILTIAZEM HYDROCHLORIDE
     Route: 065

REACTIONS (3)
  - Nausea [Recovered/Resolved]
  - Dizziness [Recovered/Resolved]
  - Feeling abnormal [Recovered/Resolved]
